FAERS Safety Report 17851718 (Version 2)
Quarter: 2022Q2

REPORT INFORMATION
  Report Type: Spontaneous
  Country: PL (occurrence: PL)
  Receive Date: 20200602
  Receipt Date: 20220401
  Transmission Date: 20220721
  Serious: No
  Sender: FDA-Public Use
  Company Number: PL-ROCHE-2602576

PATIENT
  Age: 30 Year
  Sex: Female

DRUGS (8)
  1. LOPINAVIR\RITONAVIR [Suspect]
     Active Substance: LOPINAVIR\RITONAVIR
     Indication: COVID-19 pneumonia
     Route: 048
     Dates: start: 20200421, end: 20200428
  2. TOCILIZUMAB [Suspect]
     Active Substance: TOCILIZUMAB
     Indication: COVID-19 pneumonia
     Dosage: TWO SEPARATED DOSES 8 MG/KG EVERY 12-24 H
     Route: 042
     Dates: start: 20200422, end: 20200423
  3. AZITHROMYCIN [Concomitant]
     Active Substance: AZITHROMYCIN
     Indication: COVID-19 pneumonia
     Route: 065
     Dates: start: 20200417, end: 20200419
  4. AZITHROMYCIN [Concomitant]
     Active Substance: AZITHROMYCIN
     Route: 065
     Dates: start: 20200420, end: 20200424
  5. CHLOROQUINE [Concomitant]
     Active Substance: CHLOROQUINE
     Indication: COVID-19 pneumonia
     Route: 065
     Dates: start: 20200417, end: 20200421
  6. CHLOROQUINE [Concomitant]
     Active Substance: CHLOROQUINE
     Route: 065
     Dates: start: 20200422, end: 20200426
  7. METHYLPREDNISOLONE [Concomitant]
     Active Substance: METHYLPREDNISOLONE
     Indication: COVID-19 pneumonia
     Dosage: FOR 3 CONSECUTIVE DAYS
     Dates: start: 20200424, end: 20200426
  8. THYROXINE [Concomitant]
     Active Substance: LEVOTHYROXINE
     Indication: Hypothyroidism

REACTIONS (1)
  - Off label use [Unknown]
